FAERS Safety Report 16491365 (Version 1)
Quarter: 2019Q3

REPORT INFORMATION
  Report Type: Spontaneous
  Country: US (occurrence: US)
  Receive Date: 20190627
  Receipt Date: 20190627
  Transmission Date: 20191004
  Serious: No
  Sender: FDA-Public Use
  Company Number: None

PATIENT
  Age: 34 Year
  Sex: Female
  Weight: 89.1 kg

DRUGS (10)
  1. SUBOXONE [Suspect]
     Active Substance: BUPRENORPHINE HYDROCHLORIDE\NALOXONE HYDROCHLORIDE
     Indication: PAIN
     Dosage: ?          QUANTITY:2 2 FILMS DAILY;?
     Route: 060
     Dates: start: 20190611, end: 20190627
  2. FLUOXETINE (PROCAC) [Concomitant]
  3. IBUPROFEN. [Concomitant]
     Active Substance: IBUPROFEN
  4. XANAX [Concomitant]
     Active Substance: ALPRAZOLAM
  5. ADDERALL [Concomitant]
     Active Substance: AMPHETAMINE ASPARTATE\AMPHETAMINE SULFATE\DEXTROAMPHETAMINE SACCHARATE\DEXTROAMPHETAMINE SULFATE
  6. LISINIPRIL [Concomitant]
     Active Substance: LISINOPRIL
  7. SUBOXONE [Suspect]
     Active Substance: BUPRENORPHINE HYDROCHLORIDE\NALOXONE HYDROCHLORIDE
     Indication: DRUG WITHDRAWAL SYNDROME
     Dosage: ?          QUANTITY:2 2 FILMS DAILY;?
     Route: 060
     Dates: start: 20190611, end: 20190627
  8. METFORMIN [Concomitant]
     Active Substance: METFORMIN HYDROCHLORIDE
  9. GABAPENTIN. [Concomitant]
     Active Substance: GABAPENTIN
  10. TYLENOL [Concomitant]
     Active Substance: ACETAMINOPHEN

REACTIONS (8)
  - Oropharyngeal pain [None]
  - Lymphadenopathy [None]
  - Application site pain [None]
  - Swollen tongue [None]
  - Tongue discolouration [None]
  - Tongue neoplasm [None]
  - Tongue discomfort [None]
  - Lip swelling [None]

NARRATIVE: CASE EVENT DATE: 20190615
